FAERS Safety Report 6376361-3 (Version None)
Quarter: 2009Q3

REPORT INFORMATION
  Report Type: 
  Country: None (occurrence: None)
  Receive Date: 20090922
  Receipt Date: 20090922
  Transmission Date: 20100115
  Serious: No
  Sender: FDA-Public Use
  Company Number: None

PATIENT
  Age: 49 Year
  Sex: Female
  Weight: 50.8029 kg

DRUGS (2)
  1. CYMBALTA [Suspect]
     Indication: NERVE INJURY
     Dosage: 60MG DAILY PO
     Route: 048
     Dates: start: 20080101, end: 20080701
  2. CYMBALTA [Suspect]
     Indication: POST PROCEDURAL COMPLICATION
     Dosage: 60MG DAILY PO
     Route: 048
     Dates: start: 20080101, end: 20080701

REACTIONS (3)
  - ORGASM ABNORMAL [None]
  - TREMOR [None]
  - WITHDRAWAL SYNDROME [None]
